FAERS Safety Report 13260964 (Version 1)
Quarter: 2017Q1

REPORT INFORMATION
  Report Type: Spontaneous
  Country: GB (occurrence: GB)
  Receive Date: 20170222
  Receipt Date: 20170222
  Transmission Date: 20170428
  Serious: Yes (Hospitalization)
  Sender: FDA-Public Use
  Company Number: GB-CANTON LABORATORIES, LLC-1063451

PATIENT
  Age: 55 Year
  Sex: Female

DRUGS (4)
  1. SALBUTAMOL [Concomitant]
     Active Substance: ALBUTEROL
     Route: 065
  2. ELLESTE (NORETHISTERONE, ESTRADIOL) [Concomitant]
     Route: 065
  3. NAPROSYN [Suspect]
     Active Substance: NAPROXEN
     Indication: ARTHRALGIA
     Route: 048
  4. SERETIDE (SALMETEROL XINOFOATE, FLUTICASONE PROPIONATE) [Concomitant]
     Route: 065

REACTIONS (1)
  - Respiratory arrest [Recovering/Resolving]
